FAERS Safety Report 25847780 (Version 1)
Quarter: 2025Q3

REPORT INFORMATION
  Report Type: Spontaneous
  Country: US (occurrence: US)
  Receive Date: 20250925
  Receipt Date: 20250925
  Transmission Date: 20251021
  Serious: Yes (Other)
  Sender: GALDERMA
  Company Number: US-GALDERMA-US2025018157

PATIENT

DRUGS (1)
  1. NEMLUVIO [Suspect]
     Active Substance: NEMOLIZUMAB-ILTO
     Indication: Dermatitis atopic
     Route: 058

REACTIONS (5)
  - Kidney infection [Recovering/Resolving]
  - Cystitis [Recovering/Resolving]
  - Herpes zoster [Recovering/Resolving]
  - Condition aggravated [Recovering/Resolving]
  - Skin burning sensation [Recovering/Resolving]
